FAERS Safety Report 9375596 (Version 1)
Quarter: 2013Q2

REPORT INFORMATION
  Report Type: Report from Study
  Country: US (occurrence: US)
  Receive Date: 20130628
  Receipt Date: 20130628
  Transmission Date: 20140414
  Serious: Yes (Death)
  Sender: FDA-Public Use
  Company Number: GXBR2013US001297

PATIENT
  Age: 82 Year
  Sex: Male
  Weight: 87.7 kg

DRUGS (10)
  1. ENOXAPARIN SODIUM [Suspect]
     Indication: PULMONARY EMBOLISM
     Dosage: 120 MG, QD
     Route: 058
  2. ALLOPURINOL [Concomitant]
     Indication: GOUT
     Dosage: 100 MG, QD
     Route: 048
  3. AMLODIPINE [Concomitant]
     Indication: HYPERTENSION
     Dosage: 10 MG, QD
     Route: 048
  4. CLONIDINE [Concomitant]
     Dosage: 0.3 MG, TID
     Route: 048
  5. VITAMIN B12 [Concomitant]
     Dosage: UNK DF, UNK
  6. DEXAMETHASONE [Concomitant]
     Indication: DYSPNOEA
     Dosage: 4 MG, QID
     Route: 048
  7. GLYBURIDE [Concomitant]
     Dosage: 5 MG, BID
     Route: 048
  8. HYDROCHLOROTHIAZIDE [Concomitant]
     Indication: HYPERTENSION
     Dosage: 25 MG, QD
     Route: 048
  9. KEPPRA [Concomitant]
     Dosage: 500 MG, BID
     Route: 048
  10. LISINOPRIL [Concomitant]
     Dosage: 10 MG, QD
     Route: 048

REACTIONS (1)
  - Death [Fatal]
